FAERS Safety Report 8626718 (Version 3)
Quarter: 2014Q1

REPORT INFORMATION
  Report Type: Spontaneous
  Country: US (occurrence: None)
  Receive Date: 20120323
  Receipt Date: 20140306
  Transmission Date: 20141002
  Serious: Yes (Hospitalization, Other)
  Sender: FDA-Public Use
  Company Number: 163-21880-11062412

PATIENT
  Age: 63 Year
  Sex: Male
  Weight: 83.01 kg

DRUGS (19)
  1. REVLIMID [Suspect]
     Indication: PLASMA CELL MYELOMA
     Dosage: 25 MG, 21 IN 28 D, PO
     Route: 048
     Dates: start: 20100517
  2. ACYCLOVIR [Concomitant]
  3. BACTRIM [Concomitant]
  4. DECADRON [Concomitant]
  5. LORAZEPAM [Concomitant]
  6. LOVENOX [Concomitant]
  7. OMEPRAZOLE [Concomitant]
  8. SUPER B COMPLEX (VITAMIN-B-KOMPLEX STANDARD) [Concomitant]
  9. VITAMIN E [Concomitant]
  10. COUMADIN (WARFARIN SODIUM) [Concomitant]
  11. PRILOSEC (OMEPRAZOLE) [Concomitant]
  12. ZOMETA (ZOLEDRONIC ACID) [Concomitant]
  13. ALBUTEROL SULFATE (SALBUTAMOL SULFATE) [Concomitant]
  14. SILDENAFIL (SILDENAFIL) [Concomitant]
  15. SULFAMETHOXAZOLE TRIMETHOPRIM (BACTRIM) [Concomitant]
  16. HYDROCORTISONE ACETATE (HYDROCORTISONE ACETATE) [Concomitant]
  17. HYDROCORTISONE (ANUSOL-HC) (HYDROCORTISONE ACETATE) [Concomitant]
  18. MIDAZOLAM (MIDAZOLAM) [Concomitant]
  19. FENTANYL CITRATE (FENTANYL CITRATE) [Concomitant]

REACTIONS (2)
  - Thrombosis [None]
  - Large intestine polyp [None]
